FAERS Safety Report 4354367-3 (Version None)
Quarter: 2004Q2

REPORT INFORMATION
  Report Type: 
  Country: None (occurrence: None)
  Receive Date: 20040503
  Receipt Date: 20021028
  Transmission Date: 20050107
  Serious: No
  Sender: FDA-Public Use
  Company Number: 2004AP02355

PATIENT
  Age: 64 Year
  Sex: Female

DRUGS (11)
  1. INDERAL [Suspect]
     Indication: HYPERTROPHIC CARDIOMYOPATHY
     Dosage: 100 MG DAILY PO
     Route: 048
     Dates: end: 20010927
  2. INDERAL [Suspect]
     Indication: HYPERTROPHIC CARDIOMYOPATHY
     Dosage: 100 MG DAILY PO
     Route: 048
     Dates: start: 20010927
  3. INDERAL [Suspect]
     Indication: HYPERTROPHIC CARDIOMYOPATHY
     Dosage: 100 MG DAILY PO
     Route: 048
     Dates: start: 20020301
  4. BLOPRESS [Suspect]
  5. ANPLAG [Concomitant]
  6. MUCOSTA [Concomitant]
  7. JUVELA NICOTINATE [Concomitant]
  8. WARFARIN SODIUM [Concomitant]
  9. SERENZIN [Concomitant]
  10. LENDORM [Concomitant]
  11. SELTOUCH [Concomitant]

REACTIONS (9)
  - CARDIAC DISORDER [None]
  - DIFFICULTY IN WALKING [None]
  - DIZZINESS [None]
  - FALL [None]
  - FEELING ABNORMAL [None]
  - LUMBAR VERTEBRAL FRACTURE [None]
  - MALAISE [None]
  - RESPIRATORY DISORDER [None]
  - TRAUMATIC FRACTURE [None]
